FAERS Safety Report 5848507-4 (Version None)
Quarter: 2008Q3

REPORT INFORMATION
  Report Type: 
  Country: None (occurrence: None)
  Receive Date: 20080818
  Receipt Date: 20080612
  Transmission Date: 20090109
  Serious: No
  Sender: FDA-Public Use
  Company Number: US-BAYER-200812734BCC

PATIENT
  Age: 43 Year
  Sex: Female
  Weight: 61 kg

DRUGS (2)
  1. ALEVE [Suspect]
     Indication: HEADACHE
     Dosage: TOTAL DAILY DOSE: 220 MG  UNIT DOSE: 220 MG
  2. BIRTH CONTROL [Concomitant]

REACTIONS (1)
  - HEADACHE [None]
